FAERS Safety Report 23568422 (Version 1)
Quarter: 2024Q1

REPORT INFORMATION
  Report Type: Spontaneous
  Country: AU (occurrence: AU)
  Receive Date: 20240227
  Receipt Date: 20240227
  Transmission Date: 20240410
  Serious: Yes (Other)
  Sender: FDA-Public Use
  Company Number: AU-TEVA-VS-3161506

PATIENT
  Age: 64 Year
  Sex: Male

DRUGS (8)
  1. FENTANYL [Suspect]
     Active Substance: FENTANYL\FENTANYL CITRATE
     Indication: Product used for unknown indication
     Route: 065
  2. LIDOCAINE HYDROCHLORIDE [Suspect]
     Active Substance: LIDOCAINE HYDROCHLORIDE
     Indication: Product used for unknown indication
     Route: 065
  3. PANCURONIUM BROMIDE [Suspect]
     Active Substance: PANCURONIUM BROMIDE
     Indication: Product used for unknown indication
     Route: 065
  4. ISORDIL [Concomitant]
     Active Substance: ISOSORBIDE DINITRATE
  5. DIAZEPAM [Concomitant]
     Active Substance: DIAZEPAM
  6. NITROGLYCERIN [Concomitant]
     Active Substance: NITROGLYCERIN
  7. MORPHINE [Concomitant]
     Active Substance: MORPHINE
  8. PRAZOSIN HYDROCHLORIDE [Concomitant]
     Active Substance: PRAZOSIN HYDROCHLORIDE

REACTIONS (2)
  - Bradycardia [Unknown]
  - Hypotension [Unknown]
